FAERS Safety Report 22035823 (Version 1)
Quarter: 2023Q1

REPORT INFORMATION
  Report Type: Spontaneous
  Country: US (occurrence: None)
  Receive Date: 20230222
  Receipt Date: 20230222
  Transmission Date: 20230418
  Serious: No
  Sender: FDA-Public Use
  Company Number: None

PATIENT
  Sex: Male

DRUGS (1)
  1. COSENTYX [Suspect]
     Active Substance: SECUKINUMAB
     Indication: Psoriatic arthropathy
     Dosage: 300MG EVERY 4 WEEKS SUBCUTANEOUS?
     Route: 058
     Dates: start: 201810

REACTIONS (5)
  - Psychotic disorder [None]
  - Depression [None]
  - Mood altered [None]
  - Drug hypersensitivity [None]
  - Drug ineffective [None]
